FAERS Safety Report 18391668 (Version 1)
Quarter: 2020Q4

REPORT INFORMATION
  Report Type: Spontaneous
  Country: US (occurrence: US)
  Receive Date: 20201015
  Receipt Date: 20201015
  Transmission Date: 20210114
  Serious: Yes (Death)
  Sender: FDA-Public Use
  Company Number: None

PATIENT
  Age: 90 Year
  Sex: Female
  Weight: 72 kg

DRUGS (1)
  1. RIVAROXABAN [Suspect]
     Active Substance: RIVAROXABAN
     Indication: PRODUCT USED FOR UNKNOWN INDICATION
     Route: 048
     Dates: start: 20190830, end: 20200725

REACTIONS (8)
  - Hypertension [None]
  - Intracranial mass [None]
  - Therapy non-responder [None]
  - Vasogenic cerebral oedema [None]
  - Intraventricular haemorrhage [None]
  - Miosis [None]
  - Cerebellar haematoma [None]
  - Cerebral ventricle dilatation [None]

NARRATIVE: CASE EVENT DATE: 20200725
